FAERS Safety Report 8017702-0 (Version None)
Quarter: 2012Q1

REPORT INFORMATION
  Report Type: 
  Country: None (occurrence: None)
  Receive Date: 20120103
  Receipt Date: 20111221
  Transmission Date: 20120608
  Serious: Yes (Hospitalization)
  Sender: FDA-Public Use
  Company Number: JP-JNJFOC-20111108154

PATIENT
  Sex: Male
  Weight: 52 kg

DRUGS (17)
  1. RISEDRONATE SODIUM [Concomitant]
     Route: 048
     Dates: start: 20110816
  2. PYDOXAL [Concomitant]
     Route: 048
     Dates: start: 20110816, end: 20111006
  3. REMICADE [Suspect]
     Route: 042
     Dates: start: 20110909
  4. RHEUMATREX [Suspect]
     Route: 048
     Dates: start: 20110816
  5. FOLIC ACID [Concomitant]
     Route: 048
     Dates: start: 20110816, end: 20111006
  6. ISONIAZID [Concomitant]
     Route: 048
     Dates: start: 20110816, end: 20111006
  7. RHEUMATREX [Suspect]
     Indication: RHEUMATOID ARTHRITIS
     Route: 048
  8. PREDNISOLONE [Suspect]
     Route: 048
     Dates: start: 20110816
  9. RHEUMATREX [Suspect]
     Route: 048
     Dates: start: 20110823, end: 20111006
  10. PREDNISOLONE [Suspect]
     Indication: PRODUCT USED FOR UNKNOWN INDICATION
     Route: 048
     Dates: start: 20110823
  11. PREDNISOLONE [Suspect]
     Route: 048
     Dates: start: 20110927
  12. SULFASALAZINE [Concomitant]
     Route: 065
  13. REMICADE [Suspect]
     Indication: RHEUMATOID ARTHRITIS
     Dosage: TOTAL OF 2 INFUSIONS
     Route: 042
     Dates: start: 20110927
  14. LANSOPRAZOLE [Concomitant]
     Route: 048
     Dates: start: 20110816
  15. CRESTOR [Concomitant]
     Route: 048
     Dates: start: 20110816
  16. PREDNISOLONE [Suspect]
     Route: 048
     Dates: start: 20110909
  17. LOXONIN [Concomitant]
     Route: 048
     Dates: start: 20110916

REACTIONS (3)
  - PNEUMONIA CHLAMYDIAL [None]
  - HYPOGAMMAGLOBULINAEMIA [None]
  - PNEUMOCYSTIS JIROVECI PNEUMONIA [None]
